FAERS Safety Report 8863515 (Version 1)
Quarter: 2012Q4

REPORT INFORMATION
  Report Type: 
  Country: US (occurrence: US)
  Receive Date: 20121024
  Receipt Date: 20121024
  Transmission Date: 20130627
  Serious: No
  Sender: FDA-Public Use
  Company Number: US-AMGEN-USASP2011063037

PATIENT
  Sex: Male

DRUGS (14)
  1. ENBREL [Suspect]
     Indication: PRODUCT USED FOR UNKNOWN INDICATION
     Dosage: 50 mg, qwk
     Route: 058
  2. HYDROCODEINE [Concomitant]
     Dosage: UNK
  3. ASPIRIN [Concomitant]
     Dosage: 81 mg, UNK
  4. GABAPENTIN [Concomitant]
     Dosage: 300 mg, UNK
  5. TOPIRAMATE [Concomitant]
     Dosage: 25 mg, UNK
  6. DILTIAZEM [Concomitant]
     Dosage: 120 mg, UNK
  7. CRESTOR [Concomitant]
     Dosage: 10 mg, UNK
  8. DIOVAN [Concomitant]
     Dosage: 40 mg, UNK
  9. OMEPRAZOLE [Concomitant]
     Dosage: 20 mg, UNK
  10. COMPLEX B                          /00653501/ [Concomitant]
     Dosage: UNK
  11. VITAMIN D /00107901/ [Concomitant]
     Dosage: 1000 unit, UNK
  12. VITAMIN D3 [Concomitant]
     Dosage: 2000 unit, UNK
  13. PYRIDOXINE [Concomitant]
     Dosage: 25 mg, UNK
  14. FOLIC ACID [Concomitant]
     Dosage: 1 mg, UNK

REACTIONS (1)
  - Polyp [Unknown]
